FAERS Safety Report 21133063 (Version 4)
Quarter: 2023Q1

REPORT INFORMATION
  Report Type: Report from Study
  Country: CO (occurrence: CO)
  Receive Date: 20220726
  Receipt Date: 20230328
  Transmission Date: 20230418
  Serious: Yes (Life-Threatening, Hospitalization, Other)
  Sender: FDA-Public Use
  Company Number: CO-ABBVIE-22K-036-4481388-00

PATIENT
  Age: 45 Year
  Sex: Female
  Weight: 50 kg

DRUGS (1)
  1. ZEMPLAR [Suspect]
     Active Substance: PARICALCITOL
     Indication: Hyperparathyroidism secondary
     Dosage: FREQUENCY TEXT: POSTDIALYSIS ?FORM STRENGTH: 5 MICROGRAM
     Route: 042
     Dates: start: 20220412

REACTIONS (10)
  - Respiratory arrest [Unknown]
  - Weight increased [Not Recovered/Not Resolved]
  - Malaise [Unknown]
  - Cardiomegaly [Not Recovered/Not Resolved]
  - Renal injury [Unknown]
  - Gastric disorder [Unknown]
  - Cardiac failure [Not Recovered/Not Resolved]
  - Cough [Unknown]
  - Ascites [Unknown]
  - General physical health deterioration [Not Recovered/Not Resolved]

NARRATIVE: CASE EVENT DATE: 20220718
